FAERS Safety Report 23114985 (Version 1)
Quarter: 2023Q4

REPORT INFORMATION
  Report Type: Spontaneous
  Country: US (occurrence: US)
  Receive Date: 20231027
  Receipt Date: 20231027
  Transmission Date: 20240109
  Serious: No
  Sender: FDA-Public Use
  Company Number: US-MYLANLABS-2023M1104561

PATIENT
  Sex: Male

DRUGS (1)
  1. LATANOPROST [Suspect]
     Active Substance: LATANOPROST
     Indication: Product used for unknown indication
     Dosage: 2 GTT DROPS, QD (2 DROPS ONE ON EACH EYE, ONCE AT NIGHT BEFORE BEDTIME)
     Route: 047

REACTIONS (2)
  - Eye pain [Unknown]
  - Ocular discomfort [Unknown]
